FAERS Safety Report 9204222 (Version 2)
Quarter: 2013Q2

REPORT INFORMATION
  Report Type: Spontaneous
  Country: CA (occurrence: CA)
  Receive Date: 20130402
  Receipt Date: 20130420
  Transmission Date: 20140414
  Serious: Yes (Hospitalization)
  Sender: FDA-Public Use
  Company Number: CA-B.I. PHARMACEUTICALS,INC./RIDGEFIELD-2013-CN-00497CN

PATIENT
  Sex: Male

DRUGS (1)
  1. PRADAXA [Suspect]
     Indication: AORTIC VALVE REPLACEMENT
     Dosage: 150 MG
     Dates: start: 201208, end: 201209

REACTIONS (1)
  - Haemorrhagic transformation stroke [Recovered/Resolved]
